FAERS Safety Report 6189333-9 (Version None)
Quarter: 2009Q2

REPORT INFORMATION
  Report Type: 
  Country: None (occurrence: None)
  Receive Date: 20090512
  Receipt Date: 20090428
  Transmission Date: 20091009
  Serious: Yes (Hospitalization)
  Sender: FDA-Public Use
  Company Number: RENA-1000427

PATIENT
  Age: 63 Year
  Sex: Male
  Weight: 85.7 kg

DRUGS (14)
  1. RENAGEL [Suspect]
     Indication: HYPERPHOSPHATAEMIA
     Dosage: ORAL
     Route: 048
     Dates: end: 20070901
  2. GLUCOTROL [Concomitant]
  3. NOVOLOG [Concomitant]
  4. ZOCOR [Concomitant]
  5. NEPHROCAPS (FOLIC ACID, VITAMINS NOS) [Concomitant]
  6. ASPIRIN [Concomitant]
  7. COLACE (DOCUSATE SODIUM) [Concomitant]
  8. PROCRIT [Concomitant]
  9. INSULIN (INSULIN) [Concomitant]
  10. MYCOSTATIN [Concomitant]
  11. PERCOCET [Concomitant]
  12. BACTRIM [Concomitant]
  13. NIASPAN [Concomitant]
  14. TENORMIN [Concomitant]

REACTIONS (1)
  - RENAL TRANSPLANT [None]
